FAERS Safety Report 5120630-1 (Version None)
Quarter: 2006Q4

REPORT INFORMATION
  Report Type: 
  Country: None (occurrence: None)
  Receive Date: 20061004
  Receipt Date: 20060914
  Transmission Date: 20070319
  Serious: Yes (Disabling, Other)
  Sender: FDA-Public Use
  Company Number: FR-BRISTOL-MYERS SQUIBB COMPANY-13513841

PATIENT
  Age: 56 Year
  Sex: Male

DRUGS (4)
  1. CAPTEA [Suspect]
     Route: 048
     Dates: start: 19990615
  2. PLAVIX [Suspect]
     Route: 048
     Dates: start: 20020615
  3. CAPTOPRIL [Suspect]
     Route: 048
     Dates: start: 20020615
  4. KALEORID [Suspect]
     Route: 048
     Dates: start: 20010815

REACTIONS (2)
  - DYSPHAGIA [None]
  - OESOPHAGITIS [None]
